FAERS Safety Report 4458510-7 (Version None)
Quarter: 2004Q3

REPORT INFORMATION
  Report Type: 
  Country: None (occurrence: None)
  Receive Date: 20040922
  Receipt Date: 20040406
  Transmission Date: 20050211
  Serious: Yes (Hospitalization)
  Sender: FDA-Public Use
  Company Number: US-SHR-03-007436

PATIENT
  Age: 31 Year
  Sex: Female
  Weight: 83.9 kg

DRUGS (3)
  1. BETASERON [Suspect]
     Indication: MULTIPLE SCLEROSIS
     Dosage: 8 MIU, EVERY 2D, SUBCUTANEOUS
     Route: 058
     Dates: start: 20030312
  2. HEROIN (DIAMORPHINE) [Suspect]
  3. TYLENOL W/ CODEINE NO. 3 [Concomitant]

REACTIONS (2)
  - MAJOR DEPRESSION [None]
  - PANIC DISORDER [None]
